FAERS Safety Report 7797200-X (Version None)
Quarter: 2011Q4

REPORT INFORMATION
  Report Type: 
  Country: None (occurrence: None)
  Receive Date: 20111005
  Receipt Date: 20110920
  Transmission Date: 20120403
  Serious: Yes (Hospitalization, Other)
  Sender: FDA-Public Use
  Company Number: PHHY2011BR83901

PATIENT
  Sex: Male

DRUGS (4)
  1. DIOVAN HCT [Suspect]
     Dosage: 1 DF, UNK
  2. FORMOTEROL FUMARATE [Suspect]
     Dosage: 1 DF, Q12H
  3. FORMOTEROL FUMARATE [Suspect]
     Dosage: 1 DF, (12/400MCG)
  4. METFORMIN HCL [Suspect]
     Dosage: 500 MG, UNK

REACTIONS (5)
  - BRONCHOSPASM [None]
  - CYANOSIS [None]
  - RESPIRATORY FAILURE [None]
  - OXYGEN SATURATION DECREASED [None]
  - BLOOD GLUCOSE INCREASED [None]
